FAERS Safety Report 8250859-5 (Version None)
Quarter: 2012Q2

REPORT INFORMATION
  Report Type: 
  Country: None (occurrence: None)
  Receive Date: 20120402
  Receipt Date: 20120328
  Transmission Date: 20120825
  Serious: Yes (Other)
  Sender: FDA-Public Use
  Company Number: PHEH2011US011928

PATIENT
  Sex: Female
  Weight: 89 kg

DRUGS (8)
  1. ATENOLOL [Concomitant]
  2. CYMBALTA [Concomitant]
  3. CELEBREX [Concomitant]
  4. TRIAMTERENE [Concomitant]
  5. LIPITOR [Concomitant]
  6. TYLENOL [Concomitant]
  7. GILENYA [Suspect]
     Indication: RELAPSING-REMITTING MULTIPLE SCLEROSIS
     Dosage: 0.5 MG, QD
     Route: 048
     Dates: start: 20101115, end: 20111213
  8. WELLBUTRIN [Concomitant]

REACTIONS (3)
  - RETINAL OEDEMA [None]
  - VISUAL ACUITY REDUCED [None]
  - MACULAR OEDEMA [None]
